FAERS Safety Report 23124569 (Version 1)
Quarter: 2023Q4

REPORT INFORMATION
  Report Type: Spontaneous
  Country: ES (occurrence: ES)
  Receive Date: 20231030
  Receipt Date: 20231030
  Transmission Date: 20240110
  Serious: Yes (Other)
  Sender: FDA-Public Use
  Company Number: ES-TAKEDA-2023TUS103978

PATIENT
  Age: 73 Year
  Sex: Female

DRUGS (2)
  1. MESALAMINE [Suspect]
     Active Substance: MESALAMINE
     Indication: Product used for unknown indication
     Dosage: UNK
     Route: 065
     Dates: start: 202306
  2. Salofalk [Concomitant]

REACTIONS (4)
  - Bronchiectasis [Unknown]
  - Cough [Unknown]
  - Dysphonia [Unknown]
  - Aphonia [Recovering/Resolving]
